FAERS Safety Report 10662766 (Version 1)
Quarter: 2014Q4

REPORT INFORMATION
  Report Type: Spontaneous
  Country: US (occurrence: US)
  Receive Date: 20141218
  Receipt Date: 20141218
  Transmission Date: 20150529
  Serious: No
  Sender: FDA-Public Use
  Company Number: US-B.I. PHARMACEUTICALS,INC./RIDGEFIELD-2014-BI-60420BP

PATIENT
  Age: 81 Year
  Sex: Male
  Weight: 57.15 kg

DRUGS (3)
  1. SPIRIVA [Suspect]
     Active Substance: TIOTROPIUM BROMIDE MONOHYDRATE
     Route: 048
     Dates: start: 20141212, end: 20141212
  2. SPIRIVA [Suspect]
     Active Substance: TIOTROPIUM BROMIDE MONOHYDRATE
     Indication: CHRONIC OBSTRUCTIVE PULMONARY DISEASE
     Dosage: 36 MCG
     Route: 055
     Dates: start: 201306
  3. ADVAIR HFA [Concomitant]
     Active Substance: FLUTICASONE PROPIONATE\SALMETEROL XINAFOATE
     Indication: CHRONIC OBSTRUCTIVE PULMONARY DISEASE
     Dosage: STRENGTH AND DAILY DOSE: 100 MG / 50 MG
     Route: 055

REACTIONS (2)
  - Prescribed overdose [Not Recovered/Not Resolved]
  - Incorrect route of drug administration [Recovered/Resolved]

NARRATIVE: CASE EVENT DATE: 201306
